FAERS Safety Report 4396287-4 (Version None)
Quarter: 2004Q3

REPORT INFORMATION
  Report Type: 
  Country: None (occurrence: None)
  Receive Date: 20040713
  Receipt Date: 20040602
  Transmission Date: 20050211
  Serious: Yes (Death)
  Sender: FDA-Public Use
  Company Number: US-GLAXOSMITHKLINE-A0513423A

PATIENT
  Age: 52 Year
  Sex: Female

DRUGS (2)
  1. IMITREX [Suspect]
     Dosage: 50MG SEE DOSAGE TEXT
     Route: 048
     Dates: start: 20020901
  2. BENICAR [Concomitant]

REACTIONS (6)
  - BRAIN DAMAGE [None]
  - CHEST PAIN [None]
  - HYPERHIDROSIS [None]
  - LOSS OF CONSCIOUSNESS [None]
  - MYOCARDIAL INFARCTION [None]
  - VENTRICULAR FIBRILLATION [None]
